FAERS Safety Report 7668052-3 (Version None)
Quarter: 2011Q3

REPORT INFORMATION
  Report Type: 
  Country: None (occurrence: None)
  Receive Date: 20110803
  Receipt Date: 20110719
  Transmission Date: 20111222
  Serious: Yes (Death, Hospitalization)
  Sender: FDA-Public Use
  Company Number: UTC-008703

PATIENT
  Age: 44 Year
  Sex: Female
  Weight: 73.18 kg

DRUGS (5)
  1. REMODULIN [Suspect]
     Indication: SYSTEMIC SCLEROSIS
     Dosage: 7.632 UG/KG (0.0053 UG/KG, 1 IN 1 MIN), SUBCUTANEOUS, INTRAVENOUS
     Route: 058
     Dates: start: 20110324, end: 20110601
  2. REMODULIN [Suspect]
     Indication: SYSTEMIC SCLEROSIS
     Dosage: 7.632 UG/KG (0.0053 UG/KG, 1 IN 1 MIN), SUBCUTANEOUS, INTRAVENOUS
     Route: 058
     Dates: start: 20110601
  3. LETAIRIS [Concomitant]
  4. ADCIRCA [Concomitant]
  5. COUMADIN [Concomitant]

REACTIONS (1)
  - UNEVALUABLE EVENT [None]
